FAERS Safety Report 22169962 (Version 2)
Quarter: 2023Q2

REPORT INFORMATION
  Report Type: Spontaneous
  Country: MY (occurrence: MY)
  Receive Date: 20230404
  Receipt Date: 20230406
  Transmission Date: 20230721
  Serious: Yes (Other)
  Sender: FDA-Public Use
  Company Number: MY-BoehringerIngelheim-2023-BI-228413

PATIENT
  Age: 47 Year
  Sex: Male
  Weight: 96 kg

DRUGS (5)
  1. PRADAXA [Suspect]
     Active Substance: DABIGATRAN ETEXILATE MESYLATE
     Indication: Atrial fibrillation
     Dosage: 110 MG BD
     Dates: start: 20230126, end: 20230216
  2. T.ROSUVASTATIN [Concomitant]
     Indication: Product used for unknown indication
  3. T.FLECAINIDE [Concomitant]
     Indication: Product used for unknown indication
  4. T.ETORICOXIB [Concomitant]
     Indication: Product used for unknown indication
  5. T.ESOMEPRAZOLE [Concomitant]
     Indication: Product used for unknown indication

REACTIONS (2)
  - Cerebrovascular accident [Recovered/Resolved]
  - Carotid artery occlusion [Recovered/Resolved]

NARRATIVE: CASE EVENT DATE: 20230216
